FAERS Safety Report 8218592-3 (Version None)
Quarter: 2012Q1

REPORT INFORMATION
  Report Type: 
  Country: None (occurrence: None)
  Receive Date: 20120319
  Receipt Date: 20120309
  Transmission Date: 20120608
  Serious: Yes (Other)
  Sender: FDA-Public Use
  Company Number: US-BAYER-2012-025424

PATIENT
  Age: 19 Year
  Sex: Female

DRUGS (1)
  1. YAZ [Suspect]
     Dosage: UNK
     Dates: start: 20090601, end: 20090101

REACTIONS (12)
  - DEPRESSION [None]
  - SCAR [None]
  - WEIGHT DECREASED [None]
  - PAIN [None]
  - NAUSEA [None]
  - DEHYDRATION [None]
  - GALLBLADDER DISORDER [None]
  - MALAISE [None]
  - DECREASED APPETITE [None]
  - METRORRHAGIA [None]
  - ASTHENIA [None]
  - VOMITING [None]
